FAERS Safety Report 4786004-8 (Version None)
Quarter: 2005Q4

REPORT INFORMATION
  Report Type: 
  Country: None (occurrence: None)
  Receive Date: 20051003
  Receipt Date: 20050830
  Transmission Date: 20060501
  Serious: Yes (Life-Threatening, Hospitalization, Other)
  Sender: FDA-Public Use
  Company Number: US-BRISTOL-MYERS SQUIBB COMPANY-13095492

PATIENT
  Age: 68 Year
  Sex: Male
  Weight: 90 kg

DRUGS (14)
  1. CETUXIMAB [Suspect]
     Indication: COLON CANCER
     Route: 042
     Dates: start: 20050718, end: 20050718
  2. ONDANSETRON [Concomitant]
     Indication: PREMEDICATION
     Route: 048
  3. DEXAMETHASONE [Concomitant]
     Indication: PREMEDICATION
     Route: 042
     Dates: start: 20050718, end: 20050718
  4. DARBEPOETIN ALFA [Concomitant]
     Indication: PREMEDICATION
     Route: 058
     Dates: start: 20050718, end: 20050718
  5. DIPHENHYDRAMINE HCL [Concomitant]
     Indication: PREMEDICATION
     Route: 042
     Dates: start: 20050718, end: 20050718
  6. LISINOPRIL [Concomitant]
     Route: 048
  7. ASPIRIN [Concomitant]
     Route: 048
  8. MULTI-VITAMIN [Concomitant]
  9. LOMOTIL [Concomitant]
  10. FOLIC ACID+CYANOCOBALAMIN+PYRIDOXINE HCL [Concomitant]
  11. GEMFIBROZIL [Concomitant]
  12. NPH INSULIN [Concomitant]
  13. INSULIN ASPART [Concomitant]
  14. PRILOSEC [Concomitant]
     Route: 048

REACTIONS (7)
  - ANAPHYLACTIC REACTION [None]
  - CONFUSIONAL STATE [None]
  - ESCHERICHIA INFECTION [None]
  - HYPOTENSION [None]
  - LOSS OF CONSCIOUSNESS [None]
  - PULSE ABSENT [None]
  - RESTLESSNESS [None]
